FAERS Safety Report 8058473-1 (Version None)
Quarter: 2012Q1

REPORT INFORMATION
  Report Type: 
  Country: None (occurrence: None)
  Receive Date: 20120120
  Receipt Date: 20120116
  Transmission Date: 20120608
  Serious: Yes (Other)
  Sender: FDA-Public Use
  Company Number: US-PFIZER INC-2012012232

PATIENT
  Sex: Male
  Weight: 97.5 kg

DRUGS (12)
  1. NEURONTIN [Suspect]
     Dosage: UNK
     Route: 048
  2. LATUDA [Concomitant]
     Dosage: 18 MG, 3X/DAY
  3. VISTARIL [Concomitant]
     Dosage: UNK, 3X/DAY
  4. NEURONTIN [Suspect]
     Dosage: 800 MG
     Route: 048
  5. ZOCOR [Concomitant]
     Dosage: 10 MG, 1X/DAY
  6. COLACE [Concomitant]
     Dosage: 100 MG
  7. GEODON [Concomitant]
     Dosage: 80 MG, 3X/DAY
  8. KLONOPIN [Concomitant]
     Dosage: 1 MG, 3X/DAY
  9. NORVASC [Concomitant]
     Dosage: 5 MG, 1X/DAY
  10. NEURONTIN [Suspect]
     Indication: NEUROPATHY PERIPHERAL
     Dosage: 300 MG, 3X/DAY
     Route: 048
  11. COGENTIN [Concomitant]
     Dosage: 1 MG, 2X/DAY
  12. ACETYLSALICYLIC ACID [Concomitant]
     Dosage: 80 MG, 1X/DAY

REACTIONS (3)
  - NERVE INJURY [None]
  - DRUG INEFFECTIVE [None]
  - NEUROPATHY PERIPHERAL [None]
